FAERS Safety Report 15770320 (Version 1)
Quarter: 2018Q4

REPORT INFORMATION
  Report Type: Spontaneous
  Country: US (occurrence: US)
  Receive Date: 20181207
  Receipt Date: 20181207
  Transmission Date: 20190205
  Serious: Yes (Hospitalization)
  Sender: FDA-Public Use
  Company Number: None

PATIENT
  Age: 68 Year
  Sex: Female
  Weight: 48.5 kg

DRUGS (2)
  1. BEVACIZUMAB (RHUMAB VEGF) (704865) [Suspect]
     Active Substance: BEVACIZUMAB
     Dates: end: 20180604
  2. DOXIL [Suspect]
     Active Substance: DOXORUBICIN HYDROCHLORIDE
     Dates: end: 20180910

REACTIONS (11)
  - Atrial fibrillation [None]
  - Acute kidney injury [None]
  - Laboratory test abnormal [None]
  - Nuclear magnetic resonance imaging brain abnormal [None]
  - Renal impairment [None]
  - Hemiparesis [None]
  - Postictal state [None]
  - Left atrial dilatation [None]
  - Seizure [None]
  - Aphasia [None]
  - Posterior reversible encephalopathy syndrome [None]

NARRATIVE: CASE EVENT DATE: 20180917
